FAERS Safety Report 21696011 (Version 1)
Quarter: 2022Q4

REPORT INFORMATION
  Report Type: Spontaneous
  Country: US (occurrence: None)
  Receive Date: 20221206
  Receipt Date: 20221206
  Transmission Date: 20230112
  Serious: Yes (Death)
  Sender: FDA-Public Use
  Company Number: None

PATIENT
  Age: 85 Year
  Sex: Male

DRUGS (2)
  1. VYNDAQEL [Suspect]
     Active Substance: TAFAMIDIS MEGLUMINE
     Indication: Amyloidosis
     Dosage: FREQUENCY : DAILY;  (4 CAPSULES)?
     Route: 048
     Dates: start: 20220316, end: 20221013
  2. DEVICE [Concomitant]
     Active Substance: DEVICE

REACTIONS (1)
  - Death [None]

NARRATIVE: CASE EVENT DATE: 20221013
